FAERS Safety Report 5104227-5 (Version None)
Quarter: 2006Q3

REPORT INFORMATION
  Report Type: 
  Country: None (occurrence: None)
  Receive Date: 20060911
  Receipt Date: 20060901
  Transmission Date: 20061208
  Serious: Yes (Hospitalization)
  Sender: FDA-Public Use
  Company Number: GXKR2006NG05411

PATIENT
  Age: 12 Year
  Sex: Male
  Weight: 33 kg

DRUGS (4)
  1. PREDNISOLONE TAB [Suspect]
     Dosage: 60 + 40  MG/M2, QD, ORAL
     Route: 048
  2. CAPTOPRIL [Suspect]
     Indication: HYPERTENSION
     Dosage: 0.3 MG/KG, QD, UNKNOWN
  3. CLOXACILLIN (CLOXACILLIN) [Concomitant]
  4. AMPICILLIN [Concomitant]

REACTIONS (8)
  - CONDITION AGGRAVATED [None]
  - GLOMERULONEPHRITIS MEMBRANOPROLIFERATIVE [None]
  - GRAND MAL CONVULSION [None]
  - HEADACHE [None]
  - HYPERTENSION [None]
  - LOSS OF CONSCIOUSNESS [None]
  - NEPHROTIC SYNDROME [None]
  - RENAL FAILURE ACUTE [None]
